FAERS Safety Report 16054554 (Version 1)
Quarter: 2019Q1

REPORT INFORMATION
  Report Type: Spontaneous
  Country: US (occurrence: US)
  Receive Date: 20190309
  Receipt Date: 20190309
  Transmission Date: 20190418
  Serious: No
  Sender: FDA-Public Use
  Company Number: US-TEVA-2019-US-1012792

PATIENT
  Sex: Female

DRUGS (1)
  1. ENOXAPARIN TEVA [Suspect]
     Active Substance: ENOXAPARIN
     Indication: HIP ARTHROPLASTY
     Dosage: DOSAGE: 30 MG/0.3 ML
     Route: 065
     Dates: start: 20190202

REACTIONS (1)
  - Diarrhoea [Unknown]
